FAERS Safety Report 9238019 (Version 3)
Quarter: 2013Q2

REPORT INFORMATION
  Report Type: Spontaneous
  Country: US (occurrence: US)
  Receive Date: 20130418
  Receipt Date: 20130627
  Transmission Date: 20140414
  Serious: Yes (Hospitalization)
  Sender: FDA-Public Use
  Company Number: US-BAYER-2013-048818

PATIENT
  Age: 47 Year
  Sex: Female
  Weight: 113.38 kg

DRUGS (5)
  1. YAZ [Suspect]
     Indication: PREMENSTRUAL DYSPHORIC DISORDER
  2. YAZ [Suspect]
     Indication: PREMENSTRUAL SYNDROME
  3. GIANVI [Suspect]
     Indication: PREMENSTRUAL DYSPHORIC DISORDER
  4. GIANVI [Suspect]
     Indication: PREMENSTRUAL SYNDROME
  5. ZOLOFT [Concomitant]
     Dosage: 100 MG, DAILY
     Route: 048

REACTIONS (4)
  - Pulmonary embolism [None]
  - Injury [None]
  - Pain [None]
  - Pain [None]
